FAERS Safety Report 26219105 (Version 1)
Quarter: 2025Q4

REPORT INFORMATION
  Report Type: Spontaneous
  Country: EU (occurrence: EU)
  Receive Date: 20251231
  Receipt Date: 20251231
  Transmission Date: 20260118
  Serious: Yes (Death, Other)
  Sender: SANOFI AVENTIS
  Company Number: None

PATIENT
  Age: 69 Year
  Sex: Female
  Weight: 73 kg

DRUGS (4)
  1. ASPIRIN LYSINE [Suspect]
     Active Substance: ASPIRIN LYSINE
     Indication: Thrombosis prophylaxis
     Dosage: UNK
     Route: 048
     Dates: start: 20241017, end: 20241019
  2. PLAVIX [Suspect]
     Active Substance: CLOPIDOGREL BISULFATE
     Indication: Thrombosis prophylaxis
     Dosage: UNK
     Route: 048
     Dates: start: 20241017, end: 20241019
  3. FLUINDIONE [Suspect]
     Active Substance: FLUINDIONE
     Indication: Thrombosis prophylaxis
     Dosage: UNK
     Route: 048
     Dates: start: 20241017, end: 20241019
  4. CORDARONE [Concomitant]
     Active Substance: AMIODARONE HYDROCHLORIDE
     Dosage: UNK

REACTIONS (4)
  - Retroperitoneal haematoma [Fatal]
  - Shock haemorrhagic [Fatal]
  - Vascular pseudoaneurysm [Fatal]
  - Haematoma muscle [Fatal]

NARRATIVE: CASE EVENT DATE: 20241019
